FAERS Safety Report 8196513-X (Version None)
Quarter: 2012Q1

REPORT INFORMATION
  Report Type: 
  Country: None (occurrence: None)
  Receive Date: 20120229
  Receipt Date: 20111129
  Transmission Date: 20120608
  Serious: No
  Sender: FDA-Public Use
  Company Number: US-2011-10783

PATIENT

DRUGS (1)
  1. SAMSCA [Suspect]
     Indication: HYPONATRAEMIA

REACTIONS (1)
  - NO ADVERSE EVENT [None]
